FAERS Safety Report 9353223 (Version 1)
Quarter: 2013Q2

REPORT INFORMATION
  Report Type: Spontaneous
  Country: US (occurrence: US)
  Receive Date: 20130618
  Receipt Date: 20130618
  Transmission Date: 20140414
  Serious: No
  Sender: FDA-Public Use
  Company Number: US-PFIZER INC-2013174125

PATIENT
  Age: 47 Year
  Sex: Female
  Weight: 68.03 kg

DRUGS (3)
  1. NORVASC [Suspect]
     Dosage: UNK
  2. PROTONIX [Suspect]
     Dosage: UNK
  3. ACCURETIC [Suspect]
     Dosage: UNK

REACTIONS (3)
  - Dyspnoea [Unknown]
  - Sinus disorder [Unknown]
  - Hypersensitivity [Unknown]
